FAERS Safety Report 7971817-1 (Version None)
Quarter: 2011Q4

REPORT INFORMATION
  Report Type: 
  Country: None (occurrence: None)
  Receive Date: 20111212
  Receipt Date: 20111129
  Transmission Date: 20120403
  Serious: Yes (Disabling, Other)
  Sender: FDA-Public Use
  Company Number: US-ELI_LILLY_AND_COMPANY-US201112000674

PATIENT
  Sex: Female

DRUGS (1)
  1. FORTEO [Suspect]
     Indication: OSTEOPOROSIS
     Dosage: 20 UG, QD
     Dates: start: 20110201

REACTIONS (6)
  - INJECTION SITE DISCOMFORT [None]
  - FUNGAL SKIN INFECTION [None]
  - POST POLIO SYNDROME [None]
  - MONOPLEGIA [None]
  - AORTIC VALVE DISEASE [None]
  - PAIN [None]
